FAERS Safety Report 5751380-6 (Version None)
Quarter: 2008Q2

REPORT INFORMATION
  Report Type: 
  Country: None (occurrence: None)
  Receive Date: 20080528
  Receipt Date: 20080516
  Transmission Date: 20081010
  Serious: Yes (Death, Hospitalization)
  Sender: FDA-Public Use
  Company Number: DE-GENENTECH-261694

PATIENT
  Sex: Male

DRUGS (31)
  1. RITUXIMAB [Suspect]
     Indication: DRUG USE FOR UNKNOWN INDICATION
     Dosage: 1 G, UNK
     Dates: start: 20051201, end: 20051201
  2. ADALIMUMAB [Concomitant]
     Indication: DRUG USE FOR UNKNOWN INDICATION
     Dates: start: 20031101, end: 20040101
  3. LEFLUNOMIDE [Concomitant]
     Indication: DRUG USE FOR UNKNOWN INDICATION
     Dates: start: 20060201
  4. DECORTIN H [Concomitant]
     Indication: DRUG USE FOR UNKNOWN INDICATION
  5. IDEOS [Concomitant]
     Indication: DRUG USE FOR UNKNOWN INDICATION
  6. MOBIC [Concomitant]
     Indication: DRUG USE FOR UNKNOWN INDICATION
  7. ARAVA [Concomitant]
     Indication: DRUG USE FOR UNKNOWN INDICATION
  8. OMEPRAZOLE [Concomitant]
     Indication: DRUG USE FOR UNKNOWN INDICATION
  9. FURORESE [Concomitant]
     Indication: DRUG USE FOR UNKNOWN INDICATION
  10. OMNIC [Concomitant]
     Indication: DRUG USE FOR UNKNOWN INDICATION
  11. METOPROLOL TARTRATE [Concomitant]
     Indication: DRUG USE FOR UNKNOWN INDICATION
  12. ALLOPURINOL [Concomitant]
     Indication: DRUG USE FOR UNKNOWN INDICATION
  13. INSULIN [Concomitant]
     Indication: DRUG USE FOR UNKNOWN INDICATION
  14. NOVAMINSULFON [Concomitant]
     Indication: DRUG USE FOR UNKNOWN INDICATION
  15. FRAXIPARIN [Concomitant]
     Indication: DRUG USE FOR UNKNOWN INDICATION
  16. LASIX [Concomitant]
     Indication: DRUG USE FOR UNKNOWN INDICATION
  17. AQUAPHOR PRODUCT NOS [Concomitant]
     Indication: DRUG USE FOR UNKNOWN INDICATION
  18. ASPIRIN [Concomitant]
     Indication: DRUG USE FOR UNKNOWN INDICATION
  19. METHOTREXATE [Concomitant]
     Indication: DRUG USE FOR UNKNOWN INDICATION
     Dates: start: 19960401, end: 19961001
  20. IMUREK [Concomitant]
     Indication: DRUG USE FOR UNKNOWN INDICATION
     Dates: start: 19961101, end: 19971101
  21. AZULFIDINE EN-TABS [Concomitant]
     Indication: DRUG USE FOR UNKNOWN INDICATION
     Dates: start: 19970701, end: 20000501
  22. RIDAURA [Concomitant]
     Indication: DRUG USE FOR UNKNOWN INDICATION
     Dates: start: 19991101, end: 20000501
  23. LEFLUNOMIDE [Concomitant]
     Dates: start: 20060201
  24. CONCOMITANT DRUG [Concomitant]
     Indication: DRUG USE FOR UNKNOWN INDICATION
     Dates: start: 20040501, end: 20040601
  25. CONCOMITANT DRUG [Concomitant]
     Dates: start: 20050601, end: 20051001
  26. LANTUS [Concomitant]
     Indication: DRUG USE FOR UNKNOWN INDICATION
  27. NEUTRAL INSULIN [Concomitant]
     Indication: DRUG USE FOR UNKNOWN INDICATION
  28. PANTOPRAZOLE SODIUM [Concomitant]
     Indication: DRUG USE FOR UNKNOWN INDICATION
  29. DECORTIN [Concomitant]
     Indication: DRUG USE FOR UNKNOWN INDICATION
  30. BISOPROLOL/HYDROCHLOROTHIAZIDE [Concomitant]
     Indication: DRUG USE FOR UNKNOWN INDICATION
  31. CONCOMITANT DRUG [Concomitant]

REACTIONS (2)
  - CARDIAC FAILURE [None]
  - SEPTIC SHOCK [None]
